FAERS Safety Report 7747538-7 (Version None)
Quarter: 2011Q3

REPORT INFORMATION
  Report Type: 
  Country: None (occurrence: None)
  Receive Date: 20110909
  Receipt Date: 20110902
  Transmission Date: 20111222
  Serious: Yes (Death)
  Sender: FDA-Public Use
  Company Number: KV200900321

PATIENT
  Age: 39 Year
  Sex: Male
  Weight: 85.7 kg

DRUGS (5)
  1. OXAZEPAM [Concomitant]
  2. MARIJUANA (CANNABIS SATIVA) [Concomitant]
  3. MORPHINE SULFATE [Suspect]
     Indication: PHANTOM PAIN
     Dosage: 30 MG, BID, ORLA
     Route: 048
     Dates: start: 20081007
  4. LIBRIUM [Concomitant]
  5. CHLORDIZEPOXIDE (CHLORDIAZEPOXIDE) [Concomitant]

REACTIONS (7)
  - TOXICITY TO VARIOUS AGENTS [None]
  - ACCIDENTAL OVERDOSE [None]
  - ALCOHOL USE [None]
  - HEPATIC PAIN [None]
  - CARDIO-RESPIRATORY ARREST [None]
  - ASPARTATE AMINOTRANSFERASE INCREASED [None]
  - ALANINE AMINOTRANSFERASE INCREASED [None]
